FAERS Safety Report 10402892 (Version 1)
Quarter: 2014Q3

REPORT INFORMATION
  Report Type: Spontaneous
  Country: US (occurrence: None)
  Receive Date: 20140821
  Receipt Date: 20140821
  Transmission Date: 20150326
  Serious: Yes (Hospitalization)
  Sender: FDA-Public Use
  Company Number: None

PATIENT
  Age: 54 Year
  Sex: Female
  Weight: 126.1 kg

DRUGS (3)
  1. PRILOSEC [Suspect]
     Active Substance: OMEPRAZOLE MAGNESIUM
     Indication: GASTRITIS
     Dosage: 1  QD  ORAL
     Route: 048
  2. DEXILANT [Suspect]
     Active Substance: DEXLANSOPRAZOLE
     Indication: GASTROOESOPHAGEAL REFLUX DISEASE
     Dosage: 30  QD  ORAL
     Route: 048
  3. DEXILANT [Suspect]
     Active Substance: DEXLANSOPRAZOLE
     Indication: GASTRITIS
     Dosage: 30  QD  ORAL
     Route: 048

REACTIONS (1)
  - Anaphylactic reaction [None]

NARRATIVE: CASE EVENT DATE: 20140801
